FAERS Safety Report 7834026-2 (Version None)
Quarter: 2011Q4

REPORT INFORMATION
  Report Type: 
  Country: None (occurrence: None)
  Receive Date: 20111024
  Receipt Date: 20111018
  Transmission Date: 20120403
  Serious: Yes (Life-Threatening, Hospitalization)
  Sender: FDA-Public Use
  Company Number: GB-BAYER-2011-101310

PATIENT
  Age: 74 Year
  Sex: Female
  Weight: 79 kg

DRUGS (9)
  1. FUROSEMIDE [Concomitant]
     Dosage: DAILY DOSE 40 MG
     Route: 048
  2. OXYBUTYNIN [Concomitant]
     Dosage: 5 MG, BID
     Route: 048
  3. ROPINIROLE [Concomitant]
     Dosage: DAILY DOSE 8 MG
     Route: 048
  4. ASPIRIN [Concomitant]
     Dosage: DAILY DOSE 75 MG
  5. BISOPROLOL [Concomitant]
     Dosage: DAILY DOSE 10 MG
  6. FERROUS FUMARATE [Concomitant]
     Dosage: DAILY DOSE 2 DF
  7. NAPROXEN SODIUM [Suspect]
     Indication: ARTHRALGIA
     Dosage: 500 MG, BID
     Route: 048
     Dates: start: 20110827, end: 20110908
  8. ROSUVASTATIN [Concomitant]
     Dosage: DAILY DOSE 20 MG
     Route: 048
  9. LEVOTHYROXINE SODIUM [Concomitant]
     Dosage: DAILY DOSE 100 MG
     Route: 048

REACTIONS (2)
  - RENAL FAILURE ACUTE [None]
  - GLOMERULAR FILTRATION RATE DECREASED [None]
